FAERS Safety Report 9689507 (Version 1)
Quarter: 2013Q4

REPORT INFORMATION
  Report Type: Spontaneous
  Country: US (occurrence: US)
  Receive Date: 20131114
  Receipt Date: 20131114
  Transmission Date: 20140711
  Serious: Yes (Other)
  Sender: FDA-Public Use
  Company Number: US-JNJFOC-20131103009

PATIENT
  Age: 42 Year
  Sex: Male

DRUGS (3)
  1. CALCIUM CARBONATE [Suspect]
     Indication: GASTROOESOPHAGEAL REFLUX DISEASE
     Dosage: 6-8 GMS, 4-5 DAYS A WEEK ON AN AVERAGE
     Route: 065
  2. LOSARTAN [Suspect]
     Indication: HYPERTENSION
     Dosage: 6-8 GMS, 4-5 DAYS A WEEK ON AN AVERAGE
     Route: 065
  3. HYDROCHLOROTHIAZIDE [Suspect]
     Indication: HYPERTENSION
     Dosage: 6-8 GMS, 4-5 DAYS A WEEK ON AN AVERAGE
     Route: 065

REACTIONS (6)
  - Abdominal pain [Unknown]
  - Hypercalcaemia [Unknown]
  - Milk-alkali syndrome [Unknown]
  - Nausea [Unknown]
  - Vomiting [Unknown]
  - Hypophagia [Unknown]
